FAERS Safety Report 18968596 (Version 1)
Quarter: 2021Q1

REPORT INFORMATION
  Report Type: Report from Study
  Country: IT (occurrence: IT)
  Receive Date: 20210304
  Receipt Date: 20210304
  Transmission Date: 20210420
  Serious: Yes (Other)
  Sender: FDA-Public Use
  Company Number: IT-TEVA-2021-IT-1886217

PATIENT
  Age: 35 Year
  Sex: Female
  Weight: 60 kg

DRUGS (4)
  1. TRIMETON [Concomitant]
     Active Substance: CHLORPHENIRAMINE MALEATE
     Indication: PREMEDICATION
     Dosage: UNIT DOSE: 10 MILLIGRAM
     Route: 042
  2. PACLITAXEL. [Suspect]
     Active Substance: PACLITAXEL
     Indication: BREAST CANCER
     Dosage: UNIT DOSE: 130 MILLIGRAM
     Route: 042
     Dates: start: 20210129
  3. LIMICAN 50 MG COMPRESSE [Concomitant]
     Indication: PREMEDICATION
     Dosage: UNIT DOSE: 100 MILLLIGRAM
     Route: 048
  4. SOLDESAM [Concomitant]
     Active Substance: DEXAMETHASONE
     Indication: PREMEDICATION
     Dosage: UNIT DOSE: 8 MILLIGRAM
     Route: 042

REACTIONS (4)
  - Asthenia [Unknown]
  - Leukopenia [Unknown]
  - Neutropenia [Unknown]
  - Hot flush [Unknown]

NARRATIVE: CASE EVENT DATE: 20210212
